FAERS Safety Report 20328587 (Version 1)
Quarter: 2022Q1

REPORT INFORMATION
  Report Type: Spontaneous
  Country: US (occurrence: None)
  Receive Date: 20220112
  Receipt Date: 20220112
  Transmission Date: 20220423
  Serious: Yes (Hospitalization)
  Sender: FDA-Public Use
  Company Number: None

PATIENT
  Age: 76 Year
  Sex: Female

DRUGS (17)
  1. ENVARSUS XR [Suspect]
     Active Substance: TACROLIMUS
     Indication: Lung transplant
     Dosage: FREQUENCY : DAILY;?
     Route: 048
     Dates: start: 20210116
  2. ADVAIR DISKU AER [Concomitant]
  3. AZELASTINE SPR [Concomitant]
  4. BACTRIM TAB [Concomitant]
  5. BAYER WOMENS TAB [Concomitant]
  6. CALCIUM TAB [Concomitant]
  7. ENVARSUS XR [Concomitant]
     Active Substance: TACROLIMUS
  8. ENVARSUS XR [Concomitant]
     Active Substance: TACROLIMUS
  9. FISH OIL CAP [Concomitant]
  10. IPRATROPIUM POW BROMIDE [Concomitant]
  11. LEVOTHYROXIN TAB [Concomitant]
  12. NYSTATIN [Concomitant]
     Active Substance: NYSTATIN
  13. PREDNISONE [Concomitant]
     Active Substance: PREDNISONE
  14. PRENATAL+DHA MIS WOMENS [Concomitant]
  15. PRIMIDONE TAB [Concomitant]
  16. TOBRAMYCIN [Concomitant]
     Active Substance: TOBRAMYCIN
  17. TOBRAMYCIN [Concomitant]
     Active Substance: TOBRAMYCIN

REACTIONS (3)
  - Pneumonia [None]
  - Nonspecific reaction [None]
  - Haematoma [None]

NARRATIVE: CASE EVENT DATE: 20211202
